FAERS Safety Report 23565146 (Version 1)
Quarter: 2024Q1

REPORT INFORMATION
  Report Type: Spontaneous
  Country: GB (occurrence: GB)
  Receive Date: 20240226
  Receipt Date: 20240226
  Transmission Date: 20240410
  Serious: Yes (Other)
  Sender: FDA-Public Use
  Company Number: None

PATIENT
  Age: 59 Year
  Sex: Male
  Weight: 103 kg

DRUGS (9)
  1. INDAPAMIDE [Suspect]
     Active Substance: INDAPAMIDE
     Route: 065
     Dates: start: 20240213
  2. RAMIPRIL [Concomitant]
     Active Substance: RAMIPRIL
  3. METFORMIN [Concomitant]
     Active Substance: METFORMIN HYDROCHLORIDE
  4. LERCANIDIPINE [Concomitant]
     Active Substance: LERCANIDIPINE
  5. KETOROLAC [Concomitant]
     Active Substance: KETOROLAC TROMETHAMINE
  6. ATORVASTATIN [Concomitant]
     Active Substance: ATORVASTATIN
  7. HYALURONATE SODIUM [Concomitant]
     Active Substance: HYALURONATE SODIUM
  8. PRED FORTE [Concomitant]
     Active Substance: PREDNISOLONE ACETATE
  9. GLICLAZIDE [Concomitant]
     Active Substance: GLICLAZIDE

REACTIONS (3)
  - Palpitations [Not Recovered/Not Resolved]
  - Night sweats [Not Recovered/Not Resolved]
  - Irritability [Not Recovered/Not Resolved]

NARRATIVE: CASE EVENT DATE: 20240214
